FAERS Safety Report 8393406-X (Version None)
Quarter: 2012Q2

REPORT INFORMATION
  Report Type: 
  Country: None (occurrence: None)
  Receive Date: 20120529
  Receipt Date: 20120523
  Transmission Date: 20120825
  Serious: No
  Sender: FDA-Public Use
  Company Number: US-PFIZER INC-2012125845

PATIENT
  Sex: Female
  Weight: 63.5 kg

DRUGS (7)
  1. FOLIC ACID [Concomitant]
     Indication: THALASSAEMIA BETA
     Dosage: 1 MG, DAILY
  2. ATACAND [Concomitant]
     Indication: HYPERTENSION
     Dosage: 16 MG, DAILY
  3. CALTRATE 600+D [Concomitant]
     Dosage: 600 MG, DAILY
  4. CORAL CALCIUM [Concomitant]
     Dosage: 1145 MG, DAILY
  5. LORATADINE [Concomitant]
     Indication: HYPERSENSITIVITY
     Dosage: 10 MG, DAILY
  6. LIPITOR [Suspect]
     Indication: BLOOD CHOLESTEROL INCREASED
     Dosage: 10 MG, DAILY
     Dates: start: 20040601
  7. ASPIRIN [Concomitant]
     Dosage: 81 MG, DAILY

REACTIONS (2)
  - TINNITUS [None]
  - THERAPEUTIC RESPONSE UNEXPECTED [None]
